FAERS Safety Report 14730870 (Version 1)
Quarter: 2018Q2

REPORT INFORMATION
  Report Type: Report from Study
  Country: US (occurrence: US)
  Receive Date: 20180406
  Receipt Date: 20180406
  Transmission Date: 20180711
  Serious: Yes (Other)
  Sender: FDA-Public Use
  Company Number: US-TAKEDA-2018TUS001717

PATIENT
  Sex: Female

DRUGS (1)
  1. PONATINIB [Suspect]
     Active Substance: PONATINIB
     Indication: ACUTE LYMPHOCYTIC LEUKAEMIA
     Dosage: 30 MG, QD
     Route: 048
     Dates: start: 201712

REACTIONS (19)
  - Myalgia [Unknown]
  - Ear infection [Unknown]
  - Pyrexia [Unknown]
  - Blood sodium abnormal [Unknown]
  - White blood cell disorder [Unknown]
  - Headache [Unknown]
  - Palpitations [Unknown]
  - Rash papular [Unknown]
  - Leukaemia [Unknown]
  - Type 2 diabetes mellitus [Unknown]
  - Thyroid mass [Unknown]
  - Gingival bleeding [Unknown]
  - Mucosal inflammation [Unknown]
  - Influenza [Unknown]
  - Haematocrit abnormal [Unknown]
  - Pancreatitis [Unknown]
  - Hyperlipidaemia [Unknown]
  - Night sweats [Unknown]
  - Dry skin [Not Recovered/Not Resolved]
